FAERS Safety Report 18974842 (Version 6)
Quarter: 2022Q2

REPORT INFORMATION
  Report Type: Spontaneous
  Country: EG (occurrence: EG)
  Receive Date: 20210305
  Receipt Date: 20220427
  Transmission Date: 20220721
  Serious: Yes (Hospitalization, Other)
  Sender: FDA-Public Use
  Company Number: EG-PFIZER INC-2021065166

PATIENT
  Age: 59 Year
  Sex: Female

DRUGS (2)
  1. XALKORI [Suspect]
     Active Substance: CRIZOTINIB
     Indication: Renal cell carcinoma
     Dosage: 250 MG, 2X/DAY
     Route: 048
     Dates: start: 20201126
  2. XALKORI [Suspect]
     Active Substance: CRIZOTINIB
     Indication: Non-small cell lung cancer metastatic

REACTIONS (8)
  - Oedema [Unknown]
  - Hypotension [Unknown]
  - Lower limb fracture [Unknown]
  - Fall [Unknown]
  - COVID-19 [Unknown]
  - Vomiting [Unknown]
  - Constipation [Unknown]
  - Abdominal pain upper [Unknown]

NARRATIVE: CASE EVENT DATE: 20210104
